FAERS Safety Report 22068495 (Version 2)
Quarter: 2023Q4

REPORT INFORMATION
  Report Type: Spontaneous
  Country: JP (occurrence: JP)
  Receive Date: 20230307
  Receipt Date: 20231005
  Transmission Date: 20240110
  Serious: Yes (Other)
  Sender: FDA-Public Use
  Company Number: JP-ASTELLAS-2023JP002771

PATIENT
  Age: 77 Year
  Sex: Male

DRUGS (6)
  1. MICAFUNGIN [Suspect]
     Active Substance: MICAFUNGIN SODIUM
     Indication: Bronchopulmonary aspergillosis
     Dosage: 150 MG/DAY, UNKNOWN FREQ.
     Route: 065
  2. SORAFENIB [Concomitant]
     Active Substance: SORAFENIB
     Indication: Hepatocellular carcinoma
     Dosage: UNK UNK, UNKNOWN FREQ.
     Route: 065
  3. CLARITHROMYCIN [Concomitant]
     Active Substance: CLARITHROMYCIN
     Indication: Mycobacterium avium complex infection
     Dosage: UNK UNK, UNKNOWN FREQ.
     Route: 065
  4. ETHAMBUTOL [Concomitant]
     Active Substance: ETHAMBUTOL HYDROCHLORIDE
     Indication: Mycobacterium avium complex infection
     Dosage: UNK UNK, UNKNOWN FREQ.
     Route: 065
  5. DEXAMETHASONE [Concomitant]
     Active Substance: DEXAMETHASONE
     Indication: Decreased appetite
     Dosage: 2 MG/DAY, UNKNOWN FREQ.
     Route: 065
  6. MEROPENEM [Concomitant]
     Active Substance: MEROPENEM
     Indication: Anti-infective therapy
     Dosage: UNK UNK, UNKNOWN FREQ.
     Route: 065

REACTIONS (2)
  - Respiratory failure [Unknown]
  - Drug ineffective [Unknown]
